FAERS Safety Report 4672898-3 (Version None)
Quarter: 2005Q2

REPORT INFORMATION
  Report Type: 
  Country: None (occurrence: None)
  Receive Date: 20050524
  Receipt Date: 20050511
  Transmission Date: 20051028
  Serious: Yes (Other)
  Sender: FDA-Public Use
  Company Number: 2005073839

PATIENT
  Age: 17 Year
  Sex: Male
  Weight: 63.05 kg

DRUGS (4)
  1. SUDAFED SINUS + ALLERGY (PSEUDOEPHEDRINE, CHLORPHENIRAMINE) [Suspect]
     Indication: HYPERSENSITIVITY
     Dosage: 1 TABLET ORAL
     Route: 048
     Dates: start: 20050501
  2. ATOMOXETINE HYDROCHLORIDE (ATOMOXETINE HYDROCHLORIDE) [Suspect]
  3. VALPROATE SODIUM [Suspect]
     Dosage: 500 MG
  4. VALPROATE SODIUM [Suspect]
     Indication: AFFECTIVE DISORDER
     Dosage: 500 MG

REACTIONS (2)
  - AMNESIA [None]
  - LOSS OF CONSCIOUSNESS [None]
